FAERS Safety Report 8672762 (Version 6)
Quarter: 2012Q4

REPORT INFORMATION
  Report Type: 
  Country: US (occurrence: US)
  Receive Date: 20120719
  Receipt Date: 20121211
  Transmission Date: 20130627
  Serious: Yes (Hospitalization, Disabling, Other)
  Sender: FDA-Public Use
  Company Number: US-009507513-1207USA003703

PATIENT

DRUGS (7)
  1. FOSAMAX [Suspect]
     Indication: OSTEOPOROSIS
     Dosage: 5 mg, qd
     Route: 048
     Dates: start: 20011126, end: 20020829
  2. FOSAMAX [Suspect]
     Indication: OSTEOPENIA
     Dosage: 70 mg, qw
     Route: 048
     Dates: start: 20020829, end: 200604
  3. FOSAMAX [Suspect]
     Dosage: 70 mg, qw
     Route: 048
     Dates: start: 200911, end: 201203
  4. FOSAMAX PLUS D [Suspect]
     Indication: OSTEOPOROSIS
     Dosage: 70 mg, qw
     Route: 048
     Dates: start: 2006, end: 200911
  5. ONE-A-DAY ESSENTIAL VITAMINS [Concomitant]
     Dosage: 1 UNK, UNK
     Route: 048
  6. NEXIUM [Concomitant]
     Dosage: UNK
     Route: 048
     Dates: start: 2002, end: 2008
  7. PRILOSEC [Concomitant]
     Dosage: UNK
     Route: 048
     Dates: start: 2002, end: 2003

REACTIONS (102)
  - Femur fracture [Not Recovered/Not Resolved]
  - Closed fracture manipulation [Unknown]
  - Low turnover osteopathy [Unknown]
  - Osteoporosis [Unknown]
  - Skin operation [Unknown]
  - Multiple fractures [Unknown]
  - Femur fracture [Unknown]
  - Skin graft [Unknown]
  - Hypoacusis [Unknown]
  - Glaucoma surgery [Unknown]
  - Aphasia [Unknown]
  - Fall [Unknown]
  - Impaired healing [Unknown]
  - Ear pain [Unknown]
  - Depression [Unknown]
  - Ligament sprain [Unknown]
  - Pollakiuria [Unknown]
  - Temporomandibular joint syndrome [Unknown]
  - Fall [Unknown]
  - Ligament sprain [Unknown]
  - Intervertebral disc degeneration [Unknown]
  - Limb crushing injury [Unknown]
  - Kyphosis [Unknown]
  - Fall [Unknown]
  - Ligament sprain [Unknown]
  - Ligament sprain [Unknown]
  - Ligament sprain [Unknown]
  - Viral upper respiratory tract infection [Unknown]
  - Bronchitis [Unknown]
  - Pleurisy [Unknown]
  - Bronchitis [Unknown]
  - Poisoning [Unknown]
  - Fatigue [Unknown]
  - Otitis media [Unknown]
  - Rales [Unknown]
  - Hiatus hernia [Unknown]
  - Otitis media acute [Unknown]
  - Hyperkeratosis [Unknown]
  - Bronchitis [Unknown]
  - Laceration [Unknown]
  - Tinea pedis [Unknown]
  - Carbon monoxide poisoning [Unknown]
  - Lymphadenopathy [Recovered/Resolved]
  - Sialoadenitis [Unknown]
  - Anxiety [Unknown]
  - Somatoform disorder [Unknown]
  - Fall [Unknown]
  - Lymphadenopathy [Unknown]
  - Bronchitis [Recovering/Resolving]
  - Insomnia [Unknown]
  - Skin lesion [Unknown]
  - Fall [Unknown]
  - Contusion [Unknown]
  - Ligament sprain [Unknown]
  - Migraine without aura [Unknown]
  - Bronchitis [Unknown]
  - Glaucoma [Unknown]
  - Bronchitis [Unknown]
  - Scoliosis [Unknown]
  - Fall [Unknown]
  - Chest pain [Unknown]
  - Haematoma [Unknown]
  - Fall [Unknown]
  - Limb injury [Unknown]
  - Hypertension [Unknown]
  - Haematoma [Unknown]
  - Tenosynovitis [Unknown]
  - Vitamin D deficiency [Unknown]
  - Productive cough [Unknown]
  - Laceration [Unknown]
  - Lobar pneumonia [Unknown]
  - Sciatica [Unknown]
  - Pharyngitis [Unknown]
  - Electrocardiogram T wave abnormal [Unknown]
  - Contusion [Unknown]
  - Chondritis [Unknown]
  - Meniscus injury [Unknown]
  - Upper respiratory tract infection [Unknown]
  - Cellulitis [Unknown]
  - Ligament sprain [Unknown]
  - Muscle strain [Unknown]
  - Petechiae [Unknown]
  - Cerumen impaction [Unknown]
  - Excoriation [Unknown]
  - Bronchitis [Unknown]
  - Cardiomegaly [Unknown]
  - Exostosis of external ear canal [Unknown]
  - Otitis media acute [Unknown]
  - Oesophagitis [Unknown]
  - Bronchitis [Unknown]
  - Pyrexia [Unknown]
  - Oedema peripheral [Unknown]
  - Pain in extremity [Unknown]
  - Neck pain [Unknown]
  - Muscle spasms [Unknown]
  - Drug ineffective [Unknown]
  - Drug ineffective [Unknown]
  - Gastrooesophageal reflux disease [Unknown]
  - Bone pain [Unknown]
  - Dyspepsia [Recovering/Resolving]
  - Musculoskeletal chest pain [Unknown]
  - Gingival disorder [Unknown]
